FAERS Safety Report 15947889 (Version 1)
Quarter: 2019Q1

REPORT INFORMATION
  Report Type: Spontaneous
  Country: US (occurrence: US)
  Receive Date: 20190212
  Receipt Date: 20190212
  Transmission Date: 20190417
  Serious: Yes (Death, Other)
  Sender: FDA-Public Use
  Company Number: US-ASTELLAS-2019US005238

PATIENT
  Age: 10 Month
  Sex: Female

DRUGS (7)
  1. TRIAMCINOLONE [Concomitant]
     Active Substance: TRIAMCINOLONE
     Indication: GRAFT VERSUS HOST DISEASE
     Dosage: UNK UNK, AS NEEDED
     Route: 061
  2. ALPHA-1 PROTEINASE INHIBITOR HUMAN [Concomitant]
     Indication: GRAFT VERSUS HOST DISEASE
     Route: 042
  3. BECLOMETHASONE                     /00212602/ [Concomitant]
     Active Substance: BECLOMETHASONE
     Indication: GRAFT VERSUS HOST DISEASE
     Route: 048
  4. HYDROCORTISONE. [Concomitant]
     Active Substance: HYDROCORTISONE
     Indication: GRAFT VERSUS HOST DISEASE
     Dosage: UNK UNK, AS NEEDED
     Route: 061
  5. TACROLIMUS. [Suspect]
     Active Substance: TACROLIMUS
     Indication: GRAFT VERSUS HOST DISEASE
     Dosage: 0.4 MG, EVERY 12 HOURS
     Route: 048
  6. PREDNISOLONE. [Concomitant]
     Active Substance: PREDNISOLONE
     Indication: GRAFT VERSUS HOST DISEASE
     Route: 048
  7. CLOBETASOL [Concomitant]
     Active Substance: CLOBETASOL
     Indication: GRAFT VERSUS HOST DISEASE
     Dosage: UNK UNK, AS NEEDED
     Route: 061

REACTIONS (7)
  - Death [Fatal]
  - Graft versus host disease in lung [Unknown]
  - Product use in unapproved indication [Unknown]
  - Escherichia urinary tract infection [Unknown]
  - Staphylococcal bacteraemia [Unknown]
  - Hypoxia [Unknown]
  - Respiratory distress [Unknown]
